FAERS Safety Report 9300251 (Version 1)
Quarter: 2013Q2

REPORT INFORMATION
  Report Type: Spontaneous
  Country: IE (occurrence: IE)
  Receive Date: 20130521
  Receipt Date: 20130521
  Transmission Date: 20140414
  Serious: Yes (Other)
  Sender: FDA-Public Use
  Company Number: PHFR2004IE04665

PATIENT
  Sex: Female

DRUGS (1)
  1. CLOZARIL [Suspect]
     Indication: SCHIZOPHRENIA
     Dosage: 400 MG, DAY
     Route: 048
     Dates: start: 20020912

REACTIONS (5)
  - Foetal hypokinesia [Unknown]
  - Hypotension [Unknown]
  - Fatigue [Unknown]
  - Syncope [Unknown]
  - Exposure during pregnancy [Unknown]
